FAERS Safety Report 4431250-6 (Version None)
Quarter: 2004Q3

REPORT INFORMATION
  Report Type: 
  Country: None (occurrence: None)
  Receive Date: 20040817
  Receipt Date: 20040804
  Transmission Date: 20050211
  Serious: Yes (Other)
  Sender: FDA-Public Use
  Company Number: GB-2004-030116

PATIENT
  Age: 71 Year
  Sex: Male
  Weight: 64 kg

DRUGS (2)
  1. SOTALOL HCL [Suspect]
     Indication: ATRIAL FIBRILLATION
     Dosage: 240 MG/D, UNK, ORAL
     Route: 048
     Dates: start: 19990101
  2. ASPIRIN [Concomitant]

REACTIONS (1)
  - ALVEOLITIS FIBROSING [None]
